FAERS Safety Report 5837386-7 (Version None)
Quarter: 2008Q3

REPORT INFORMATION
  Report Type: 
  Country: None (occurrence: None)
  Receive Date: 20080807
  Receipt Date: 20080728
  Transmission Date: 20090109
  Serious: Yes (Hospitalization, Other)
  Sender: FDA-Public Use
  Company Number: US-PFIZER INC-2007026250

PATIENT
  Sex: Female
  Weight: 72.6 kg

DRUGS (7)
  1. LYRICA [Suspect]
     Indication: MUSCULOSKELETAL PAIN
     Dosage: DAILY DOSE:150MG
  2. SYNTHROID [Concomitant]
  3. OGEN [Concomitant]
  4. ESTRADIOL [Concomitant]
  5. PERCOCET [Concomitant]
  6. SOMA [Concomitant]
  7. LIBRAX [Concomitant]

REACTIONS (9)
  - BLOOD PRESSURE INCREASED [None]
  - CHEST PAIN [None]
  - DYSPNOEA [None]
  - JOINT SWELLING [None]
  - OEDEMA PERIPHERAL [None]
  - OXYGEN SATURATION DECREASED [None]
  - PAIN [None]
  - ROTATOR CUFF REPAIR [None]
  - WEIGHT INCREASED [None]
